FAERS Safety Report 8709751 (Version 2)
Quarter: 2013Q3

REPORT INFORMATION
  Report Type: Spontaneous
  Country: US (occurrence: US)
  Receive Date: 20120806
  Receipt Date: 20130806
  Transmission Date: 20140515
  Serious: No
  Sender: FDA-Public Use
  Company Number: US-GLAXOSMITHKLINE-A0976281A

PATIENT
  Age: 5 Year
  Sex: Male

DRUGS (3)
  1. ADVAIR [Suspect]
     Indication: ASTHMA
     Dosage: 1PUFF TWICE PER DAY
     Route: 055
     Dates: start: 20111031, end: 20120501
  2. ALBUTEROL [Concomitant]
  3. EPI PEN [Concomitant]

REACTIONS (10)
  - Pruritus [Recovered/Resolved]
  - Pruritus [Recovered/Resolved]
  - Throat irritation [Recovered/Resolved]
  - Abdominal pain upper [Recovered/Resolved]
  - Hypersensitivity [Recovered/Resolved]
  - Oropharyngeal pain [Recovered/Resolved]
  - Drug hypersensitivity [Recovered/Resolved]
  - Pruritus generalised [Unknown]
  - Underdose [Unknown]
  - Product quality issue [Unknown]
